FAERS Safety Report 8179523-8 (Version None)
Quarter: 2012Q1

REPORT INFORMATION
  Report Type: 
  Country: None (occurrence: None)
  Receive Date: 20120302
  Receipt Date: 20120223
  Transmission Date: 20120608
  Serious: Yes (Other)
  Sender: FDA-Public Use
  Company Number: FR-JNJFOC-20120212890

PATIENT
  Age: 55 Year
  Sex: Male

DRUGS (5)
  1. ISENTRESS [Concomitant]
     Indication: HIV INFECTION
     Route: 048
  2. UNSPECIFIED COPD MEDICATIONS [Concomitant]
     Indication: CHRONIC OBSTRUCTIVE PULMONARY DISEASE
     Route: 055
  3. ZIAGEN [Concomitant]
     Indication: HIV INFECTION
     Route: 048
  4. MS CONTIN [Concomitant]
     Indication: PAIN
     Dosage: AT LEAST 600MG PER DAY
     Route: 065
  5. INTELENCE [Suspect]
     Indication: HIV INFECTION
     Route: 048
     Dates: start: 20120120

REACTIONS (3)
  - OEDEMA PERIPHERAL [None]
  - GAIT DISTURBANCE [None]
  - PAIN IN EXTREMITY [None]
